FAERS Safety Report 19253278 (Version 1)
Quarter: 2021Q2

REPORT INFORMATION
  Report Type: Spontaneous
  Country: US (occurrence: US)
  Receive Date: 20210513
  Receipt Date: 20210513
  Transmission Date: 20210717
  Serious: No
  Sender: FDA-Public Use
  Company Number: US-TAKEDA-2021TUS029783

PATIENT

DRUGS (1)
  1. GAMMAGARD LIQUID [Suspect]
     Active Substance: HUMAN IMMUNOGLOBULIN G
     Indication: MYASTHENIA GRAVIS
     Dosage: 0.5 GRAM PER KILOGRAM EVERY 28 DAYS
     Route: 065

REACTIONS (6)
  - Eyelid ptosis [Unknown]
  - Blepharospasm [Unknown]
  - Muscle twitching [Unknown]
  - Muscle spasms [Unknown]
  - Arthralgia [Unknown]
  - Vitreous floaters [Unknown]
